FAERS Safety Report 9205362 (Version 2)
Quarter: 2013Q2

REPORT INFORMATION
  Report Type: Report from Study
  Country: US (occurrence: US)
  Receive Date: 20130402
  Receipt Date: 20130409
  Transmission Date: 20140414
  Serious: Yes (Other)
  Sender: FDA-Public Use
  Company Number: US-US-EMD SERONO, INC.-7202267

PATIENT
  Age: 47 Year
  Sex: Female
  Weight: 76 kg

DRUGS (4)
  1. REBIF [Suspect]
     Indication: RELAPSING-REMITTING MULTIPLE SCLEROSIS
     Route: 058
     Dates: start: 20060327
  2. REBIF [Suspect]
     Route: 058
     Dates: start: 20060615
  3. LEVOTHYROXINE [Concomitant]
     Indication: PRODUCT USED FOR UNKNOWN INDICATION
     Route: 048
  4. MELOXICAM [Concomitant]
     Indication: PAIN
     Route: 048
     Dates: start: 20111109

REACTIONS (13)
  - Cataract [Recovering/Resolving]
  - Stress [Unknown]
  - Carpal tunnel syndrome [Unknown]
  - Chronic fatigue syndrome [Unknown]
  - Multiple sclerosis [Unknown]
  - Back pain [Unknown]
  - Pollakiuria [Unknown]
  - Rash [Unknown]
  - Pruritus [Unknown]
  - Paraesthesia [Unknown]
  - Hypoaesthesia [Unknown]
  - Depression [Unknown]
  - Headache [Unknown]
